FAERS Safety Report 7092960-8 (Version None)
Quarter: 2010Q4

REPORT INFORMATION
  Report Type: 
  Country: None (occurrence: None)
  Receive Date: 20101110
  Receipt Date: 20101026
  Transmission Date: 20110411
  Serious: Yes (Other)
  Sender: FDA-Public Use
  Company Number: US-SHIONOGI USA, INC-2010000063

PATIENT
  Age: 4 Month
  Sex: Female

DRUGS (1)
  1. ORAPRED ORAL SOLUTION [Suspect]
     Indication: HAEMANGIOMA
     Dosage: 3.5 MG/KG/DAY
     Route: 048

REACTIONS (1)
  - PNEUMOCYSTIS JIROVECI PNEUMONIA [None]
